FAERS Safety Report 23517415 (Version 1)
Quarter: 2024Q1

REPORT INFORMATION
  Report Type: Report from Study
  Country: US (occurrence: US)
  Receive Date: 20240213
  Receipt Date: 20240213
  Transmission Date: 20240410
  Serious: No
  Sender: FDA-Public Use
  Company Number: US-BIOVITRUM-2024-US-002198

PATIENT
  Age: 75 Year
  Sex: Male

DRUGS (6)
  1. DOPTELET [Suspect]
     Active Substance: AVATROMBOPAG MALEATE
     Indication: Thrombocytopenia
     Dosage: ONCE DAILY
     Route: 048
     Dates: start: 20240203
  2. CODEINE SULFATE [Concomitant]
     Active Substance: CODEINE SULFATE
     Indication: Product used for unknown indication
  3. DOXYCYCLINE HYCLATE [Concomitant]
     Active Substance: DOXYCYCLINE HYCLATE
     Indication: Product used for unknown indication
  4. IODINE [Concomitant]
     Active Substance: IODINE
     Indication: Product used for unknown indication
  5. PENICILLIN [Concomitant]
     Active Substance: PENICILLIN
     Indication: Product used for unknown indication
  6. SULFA  (SULFONAMIDE ANTIBIOTICS) [Concomitant]
     Indication: Product used for unknown indication

REACTIONS (1)
  - Blood pressure increased [Not Recovered/Not Resolved]
